FAERS Safety Report 24428765 (Version 1)
Quarter: 2024Q4

REPORT INFORMATION
  Report Type: Spontaneous
  Country: US (occurrence: US)
  Receive Date: 20241011
  Receipt Date: 20241011
  Transmission Date: 20250115
  Serious: Yes (Other)
  Sender: PFIZER
  Company Number: US-PFIZER INC-PV202400131918

PATIENT
  Age: 34 Year
  Sex: Female

DRUGS (1)
  1. XELJANZ XR [Suspect]
     Active Substance: TOFACITINIB CITRATE
     Indication: Rheumatoid arthritis
     Dosage: 11 MG, 1X/DAY
     Route: 048
     Dates: start: 202402

REACTIONS (4)
  - Vaginal abscess [Recovered/Resolved]
  - Rash [Not Recovered/Not Resolved]
  - Urinary tract infection [Recovering/Resolving]
  - Endodontic procedure [Unknown]

NARRATIVE: CASE EVENT DATE: 20240101
